FAERS Safety Report 20603578 (Version 8)
Quarter: 2022Q4

REPORT INFORMATION
  Report Type: Report from Study
  Country: DE (occurrence: DE)
  Receive Date: 20220316
  Receipt Date: 20221215
  Transmission Date: 20230112
  Serious: Yes (Hospitalization, Other)
  Sender: FDA-Public Use
  Company Number: DE-002147023-NVSC2022DE026822

PATIENT
  Sex: Female
  Weight: 63 kg

DRUGS (15)
  1. LETROZOLE [Suspect]
     Active Substance: LETROZOLE
     Indication: Breast cancer metastatic
     Dosage: 2.5 MILLIGRAM, QD
     Route: 048
     Dates: start: 20190105, end: 20220607
  2. ZOLEDRONIC ACID [Suspect]
     Active Substance: ZOLEDRONIC ACID
     Indication: Breast cancer
     Dosage: 4 MILLIGRAM (4 MG (Q28H))
     Route: 042
     Dates: start: 20190117, end: 20210223
  3. ZOLEDRONIC ACID [Suspect]
     Active Substance: ZOLEDRONIC ACID
     Indication: Metastases to bone
  4. ZOLEDRONIC ACID [Suspect]
     Active Substance: ZOLEDRONIC ACID
     Indication: Breast cancer
     Dosage: 4 MILLIGRAM, 4 MG (Q28H)
     Route: 042
     Dates: start: 20190117, end: 20210223
  5. ZOLEDRONIC ACID [Suspect]
     Active Substance: ZOLEDRONIC ACID
     Indication: Metastases to bone
  6. KISQALI [Suspect]
     Active Substance: RIBOCICLIB
     Indication: Breast cancer metastatic
     Dosage: 600MG, QD (SCHEMA 21 DAYS INTAKE, 7 DAYS PAUSE)
     Route: 048
     Dates: start: 20190105, end: 20190227
  7. KISQALI [Suspect]
     Active Substance: RIBOCICLIB
     Dosage: 400 MG, QD (SCHEMA 21D INTAKE, 7 DAYS PAUSE)
     Route: 048
     Dates: start: 20190228, end: 20190522
  8. KISQALI [Suspect]
     Active Substance: RIBOCICLIB
     Dosage: 200 MG, QD SCHEMA 21 DAYS INTAKE, 7 DAYS PAUSE
     Route: 048
     Dates: start: 20190523, end: 20190911
  9. KISQALI [Suspect]
     Active Substance: RIBOCICLIB
     Dosage: 400 MG, QD (SCHEMA 21 DAYS INTAKE, 7 DAYS PAUSE
     Route: 048
     Dates: start: 20190912, end: 20200519
  10. KISQALI [Suspect]
     Active Substance: RIBOCICLIB
     Dosage: 400 MG, QD SCHEMA 21 DAYS INTAKE, 7 DAYS PAUSE
     Route: 048
     Dates: start: 20200527, end: 20210331
  11. KISQALI [Suspect]
     Active Substance: RIBOCICLIB
     Dosage: 400MG, QD (SCHEMA 21 DAYS INTAKE, 7 DAYS PAUSE)
     Route: 048
     Dates: start: 20210424, end: 20220213
  12. KISQALI [Suspect]
     Active Substance: RIBOCICLIB
     Dosage: 400 MG, QD SCHEMA 21 DAYS INTAKE, 7 DAYS PAUSE
     Route: 048
     Dates: start: 20220323, end: 20220607
  13. AMOXICILLIN\CLAVULANATE POTASSIUM [Concomitant]
     Active Substance: AMOXICILLIN\CLAVULANATE POTASSIUM
     Indication: Infection prophylaxis
     Dosage: 875/125 MG, BID ONCE IN THE MORNING AND EVENING
     Route: 048
     Dates: start: 20210412, end: 20210423
  14. AMOXICILLIN\CLAVULANATE POTASSIUM [Concomitant]
     Active Substance: AMOXICILLIN\CLAVULANATE POTASSIUM
     Indication: Prophylaxis
     Dosage: 875/125 MG, BID ONCE IN THE MORNING AND EVENING
     Route: 048
     Dates: start: 20220217, end: 20220227
  15. AFINITOR [Concomitant]
     Active Substance: EVEROLIMUS
     Indication: Breast cancer metastatic
     Dosage: 5 MILLIGRAM, QD (5 MG, QD)
     Route: 048
     Dates: start: 20220812

REACTIONS (3)
  - Osteonecrosis of jaw [Recovering/Resolving]
  - Mass [Recovered/Resolved]
  - Off label use [Unknown]
